FAERS Safety Report 5669030-6 (Version None)
Quarter: 2008Q1

REPORT INFORMATION
  Report Type: 
  Country: None (occurrence: None)
  Receive Date: 20080313
  Receipt Date: 20080313
  Transmission Date: 20080703
  Serious: Yes (Hospitalization, Disabling, Other)
  Sender: FDA-Public Use
  Company Number: None

PATIENT
  Age: 26 Year
  Sex: Female
  Weight: 65.7716 kg

DRUGS (2)
  1. HUMALOG [Suspect]
     Indication: DIABETES MELLITUS
     Dosage: USING INSULIN PUMP NOW
     Dates: start: 19930207, end: 20080312
  2. HUMALIN [Suspect]

REACTIONS (6)
  - MUSCLE SWELLING [None]
  - MYALGIA [None]
  - MYOSITIS [None]
  - PAIN [None]
  - SKIN BURNING SENSATION [None]
  - SWELLING FACE [None]
